FAERS Safety Report 9420373 (Version 1)
Quarter: 2013Q3

REPORT INFORMATION
  Report Type: Spontaneous
  Country: US (occurrence: US)
  Receive Date: 20130725
  Receipt Date: 20130725
  Transmission Date: 20140515
  Serious: No
  Sender: FDA-Public Use
  Company Number: US-ABBOTT-13P-163-1062354-00

PATIENT
  Sex: Female

DRUGS (10)
  1. SYNTHROID [Suspect]
     Indication: HYPOTHYROIDISM
     Dates: end: 201303
  2. CALCIUM [Concomitant]
     Indication: PRODUCT USED FOR UNKNOWN INDICATION
  3. MAGNESIUM [Concomitant]
     Indication: PRODUCT USED FOR UNKNOWN INDICATION
  4. COQ10 [Concomitant]
     Indication: PRODUCT USED FOR UNKNOWN INDICATION
  5. L CARNATINE [Concomitant]
     Indication: PRODUCT USED FOR UNKNOWN INDICATION
  6. VITAMIN C [Concomitant]
     Indication: PRODUCT USED FOR UNKNOWN INDICATION
  7. VITAMIN E [Concomitant]
     Indication: PRODUCT USED FOR UNKNOWN INDICATION
  8. VITAMIN D [Concomitant]
     Indication: PRODUCT USED FOR UNKNOWN INDICATION
  9. MULTIVITAMIN/MINTERAL FORMULA [Concomitant]
     Indication: PRODUCT USED FOR UNKNOWN INDICATION
  10. UNKNOWN MEDICATIONS [Concomitant]
     Indication: PRODUCT USED FOR UNKNOWN INDICATION

REACTIONS (4)
  - Cold sweat [Not Recovered/Not Resolved]
  - Palpitations [Not Recovered/Not Resolved]
  - Tremor [Not Recovered/Not Resolved]
  - Insomnia [Not Recovered/Not Resolved]
